FAERS Safety Report 6122202-9 (Version None)
Quarter: 2009Q1

REPORT INFORMATION
  Report Type: 
  Country: None (occurrence: None)
  Receive Date: 20090316
  Receipt Date: 20090304
  Transmission Date: 20090719
  Serious: Yes (Other)
  Sender: FDA-Public Use
  Company Number: GXKR2009ES02794

PATIENT
  Age: 57 Year
  Sex: Female

DRUGS (3)
  1. METHYLPREDNISOLONE 4MG TAB [Suspect]
     Indication: MULTIPLE SCLEROSIS
     Dosage: 1000 MG, QD, IV BOLUS ; 1000 MG, QD, IV BOLUS ; 1000 MG, QD, IV BOLUS
     Route: 040
  2. METHYLPREDNISOLONE 4MG TAB [Suspect]
     Indication: MULTIPLE SCLEROSIS
     Dosage: 1000 MG, QD, IV BOLUS ; 1000 MG, QD, IV BOLUS ; 1000 MG, QD, IV BOLUS
     Route: 040
  3. METHYLPREDNISOLONE 4MG TAB [Suspect]
     Indication: MULTIPLE SCLEROSIS
     Dosage: 1000 MG, QD, IV BOLUS ; 1000 MG, QD, IV BOLUS ; 1000 MG, QD, IV BOLUS
     Route: 040

REACTIONS (3)
  - DISEASE RECURRENCE [None]
  - HEPATITIS ACUTE [None]
  - HEPATOTOXICITY [None]
